FAERS Safety Report 7554504-3 (Version None)
Quarter: 2011Q2

REPORT INFORMATION
  Report Type: 
  Country: None (occurrence: None)
  Receive Date: 20110617
  Receipt Date: 20110607
  Transmission Date: 20111010
  Serious: Yes (Life-Threatening)
  Sender: FDA-Public Use
  Company Number: B0724567A

PATIENT
  Sex: Male

DRUGS (3)
  1. DEXTRAN INJ [Suspect]
     Indication: ACUTE LYMPHOCYTIC LEUKAEMIA
     Route: 042
     Dates: start: 20101227
  2. ONDANSERTRON HYDROCHLORIDE [Suspect]
     Indication: PREMEDICATION
     Route: 065
     Dates: start: 20101227
  3. ETOPOPHOS PRESERVATIVE FREE [Suspect]
     Indication: ACUTE LYMPHOCYTIC LEUKAEMIA
     Dosage: 118MG CYCLIC
     Route: 042
     Dates: start: 20101227

REACTIONS (4)
  - OXYGEN SATURATION DECREASED [None]
  - SHOCK [None]
  - TACHYCARDIA [None]
  - ANAPHYLACTIC SHOCK [None]
